FAERS Safety Report 7666896-5 (Version None)
Quarter: 2011Q3

REPORT INFORMATION
  Report Type: 
  Country: None (occurrence: None)
  Receive Date: 20110806
  Receipt Date: 20110720
  Transmission Date: 20111222
  Serious: No
  Sender: FDA-Public Use
  Company Number: US-ABBOTT-11P-163-0840404-00

PATIENT
  Sex: Female
  Weight: 49.032 kg

DRUGS (6)
  1. MOBIC [Concomitant]
     Indication: PAIN
  2. NIASPAN [Suspect]
     Indication: HIGH DENSITY LIPOPROTEIN DECREASED
     Dates: start: 20110601
  3. ASPIRIN [Concomitant]
     Indication: PRODUCT USED FOR UNKNOWN INDICATION
  4. LIPITOR [Concomitant]
     Indication: PRODUCT USED FOR UNKNOWN INDICATION
  5. FOSAMAX [Concomitant]
     Indication: PRODUCT USED FOR UNKNOWN INDICATION
  6. NIASPAN [Suspect]
     Indication: LOW DENSITY LIPOPROTEIN INCREASED
     Dosage: AT BEDTIME

REACTIONS (6)
  - HEADACHE [None]
  - BLOOD CHOLESTEROL ABNORMAL [None]
  - FAECAL VOLUME INCREASED [None]
  - DIZZINESS [None]
  - FLUSHING [None]
  - DRUG INEFFECTIVE [None]
